FAERS Safety Report 10563798 (Version 2)
Quarter: 2014Q4

REPORT INFORMATION
  Report Type: Spontaneous
  Country: GB (occurrence: GB)
  Receive Date: 20141104
  Receipt Date: 20141202
  Transmission Date: 20150529
  Serious: Yes (Hospitalization, Other)
  Sender: FDA-Public Use
  Company Number: PHHY2014GB142311

PATIENT
  Sex: Male

DRUGS (3)
  1. CODEINE PHOSPHATE [Concomitant]
     Active Substance: CODEINE PHOSPHATE
  2. PARACETAMOL [Suspect]
     Active Substance: ACETAMINOPHEN
     Indication: ANALGESIC THERAPY
     Dosage: 13G OVER 48-72 HOURS - 1ST DOSE 1G IV
     Route: 042
     Dates: end: 20141004
  3. TRAMADOL [Concomitant]
     Active Substance: TRAMADOL

REACTIONS (2)
  - Liver function test abnormal [Recovered/Resolved]
  - Overdose [Recovered/Resolved]

NARRATIVE: CASE EVENT DATE: 20141004
